FAERS Safety Report 9157016 (Version 1)
Quarter: 2013Q1

REPORT INFORMATION
  Report Type: Spontaneous
  Country: US (occurrence: None)
  Receive Date: 20130308
  Receipt Date: 20130308
  Transmission Date: 20140127
  Serious: Yes (Other)
  Sender: FDA-Public Use
  Company Number: None

PATIENT
  Age: 81 Year
  Sex: Female
  Weight: 96.62 kg

DRUGS (1)
  1. LATANOPROST [Suspect]
     Indication: GLAUCOMA
     Dosage: 1 DROP EACH EYE AT BEDTIME
     Dates: start: 20130125, end: 20130127

REACTIONS (4)
  - Swelling face [None]
  - Swollen tongue [None]
  - Pharyngeal oedema [None]
  - Gingival pain [None]
